FAERS Safety Report 20418862 (Version 1)
Quarter: 2022Q1

REPORT INFORMATION
  Report Type: Spontaneous
  Country: US (occurrence: US)
  Receive Date: 20220202
  Receipt Date: 20220202
  Transmission Date: 20220423
  Serious: No
  Sender: FDA-Public Use
  Company Number: US-ICU MEDICAL, INC.-ICU2021US00035

PATIENT

DRUGS (1)
  1. STERILE WATER [Suspect]
     Active Substance: WATER
     Indication: Product used for unknown indication
     Dosage: 1000 ML
     Route: 042
     Dates: start: 20211214

REACTIONS (2)
  - Product preparation error [Unknown]
  - No adverse event [None]

NARRATIVE: CASE EVENT DATE: 20211214
